FAERS Safety Report 10436528 (Version 1)
Quarter: 2014Q3

REPORT INFORMATION
  Report Type: Spontaneous
  Country: US (occurrence: US)
  Receive Date: 20140908
  Receipt Date: 20140908
  Transmission Date: 20150326
  Serious: Yes (Hospitalization, Other)
  Sender: FDA-Public Use
  Company Number: US-ALKERMES INC.-ALK-2014-003474

PATIENT

DRUGS (1)
  1. VIVITROL [Suspect]
     Active Substance: NALTREXONE
     Indication: ALCOHOLISM
     Dosage: 380 MG, QMO
     Route: 030
     Dates: start: 20140701

REACTIONS (4)
  - Infection [Unknown]
  - Large intestine operation [Unknown]
  - Appendicitis perforated [Unknown]
  - Abscess [Unknown]

NARRATIVE: CASE EVENT DATE: 201408
